FAERS Safety Report 6358268-0 (Version None)
Quarter: 2009Q3

REPORT INFORMATION
  Report Type: 
  Country: None (occurrence: None)
  Receive Date: 20090916
  Receipt Date: 20090819
  Transmission Date: 20100115
  Serious: Yes (Disabling)
  Sender: FDA-Public Use
  Company Number: SE-B.I. PHARMACEUTICALS,INC./RIDGEFIELD-2009-SW-00199SW

PATIENT
  Sex: Female

DRUGS (13)
  1. SIFROL TAB 0.35 MG [Suspect]
     Indication: RESTLESS LEGS SYNDROME
     Dosage: 0.35 MG
  2. SIFROL TAB 0.35 MG [Suspect]
     Dosage: 1.05 MG
     Dates: start: 20090101
  3. SIFROL TAB. 0.7 MG [Suspect]
     Indication: RESTLESS LEGS SYNDROME
     Dosage: 0.7 MG
     Dates: end: 20090101
  4. AMLODIPINE [Concomitant]
  5. EMCONCOR [Concomitant]
  6. FURIX [Concomitant]
  7. LYRICA [Concomitant]
  8. OMEPRAZOL [Concomitant]
  9. RAMIPRIL [Concomitant]
  10. DETRUSITOL [Concomitant]
  11. RELIFEX [Concomitant]
  12. SPIRONOLAKTON [Concomitant]
  13. TROMBYL [Concomitant]

REACTIONS (11)
  - ABASIA [None]
  - DISSOCIATION [None]
  - DRUG INEFFECTIVE [None]
  - FALL [None]
  - GAIT DISTURBANCE [None]
  - GENERAL PHYSICAL HEALTH DETERIORATION [None]
  - LOSS OF CONTROL OF LEGS [None]
  - MEDICATION ERROR [None]
  - OVERDOSE [None]
  - PAIN IN EXTREMITY [None]
  - TREMOR [None]
